FAERS Safety Report 9180756 (Version 2)
Quarter: 2013Q2

REPORT INFORMATION
  Report Type: Spontaneous
  Country: GB (occurrence: None)
  Receive Date: 20130320
  Receipt Date: 20130423
  Transmission Date: 20140414
  Serious: Yes (Other)
  Sender: FDA-Public Use
  Company Number: AUR-APL-2013-02297

PATIENT
  Age: 67 Year
  Sex: Male
  Weight: 99.78 kg

DRUGS (4)
  1. AMLODIPINE (AMLODIPINE) [Suspect]
     Indication: BLOOD PRESSURE
     Dosage: (5 MG), ORAL
     Route: 048
     Dates: start: 20120101
  2. SIMVASTATIN (SIMVASTATIN) [Suspect]
     Indication: BLOOD CHOLESTEROL INCREASED
     Dosage: (20 MG), UNKNOWN
     Dates: end: 20121207
  3. NASONEX [Suspect]
     Indication: PRODUCT USED FOR UNKNOWN INDICATION
     Dosage: (50 MCG), UNKNOWN
     Dates: end: 201301
  4. RAMIPRIL (RAMIPRIL) [Concomitant]

REACTIONS (5)
  - Flank pain [None]
  - Cough [None]
  - Drug interaction [None]
  - Myalgia [None]
  - Chest pain [None]
